FAERS Safety Report 7288112-9 (Version None)
Quarter: 2011Q1

REPORT INFORMATION
  Report Type: 
  Country: None (occurrence: None)
  Receive Date: 20110211
  Receipt Date: 20110204
  Transmission Date: 20110831
  Serious: Yes (Other)
  Sender: FDA-Public Use
  Company Number: US-BAYER-2011-012430

PATIENT
  Sex: Male
  Weight: 95 kg

DRUGS (1)
  1. NEO-SYNEPHRINE EXTRA STRENGTH [Suspect]
     Indication: NASAL CONGESTION
     Dosage: 2 TO 3 SPRAYS PRN, BOTTLE SIZE 5 OZ
     Route: 045

REACTIONS (2)
  - MYDRIASIS [None]
  - NIGHT BLINDNESS [None]
